FAERS Safety Report 17398017 (Version 1)
Quarter: 2020Q1

REPORT INFORMATION
  Report Type: Spontaneous
  Country: US (occurrence: US)
  Receive Date: 20200210
  Receipt Date: 20200210
  Transmission Date: 20200409
  Serious: Yes (Other)
  Sender: FDA-Public Use
  Company Number: US-VAYAPHARMA-2019-US-019444

PATIENT
  Age: 63 Year
  Sex: Female
  Weight: 107.5 kg

DRUGS (4)
  1. PREDNISONE. [Suspect]
     Active Substance: PREDNISONE
     Route: 065
  2. UNSPECIFIED MEDICATIONS [Concomitant]
     Active Substance: UNSPECIFIED INGREDIENT
  3. VERAPAMIL [Suspect]
     Active Substance: VERAPAMIL HYDROCHLORIDE
     Dosage: 180 IN THE MORNING, 90 BEFORE BEDTIME
     Route: 065
     Dates: start: 2005
  4. VAYACOG (NON-SPECIFIC) [Suspect]
     Active Substance: DOCONEXENT\ICOSAPENT\PHOSPHATIDYL SERINE
     Indication: LIPID METABOLISM DISORDER
     Dosage: 1 CAPSULES / 1X/DAY /
     Route: 065

REACTIONS (10)
  - Pancreatitis [Unknown]
  - Constipation [Unknown]
  - Muscle spasms [Unknown]
  - Proctalgia [Not Recovered/Not Resolved]
  - Weight increased [Not Recovered/Not Resolved]
  - Thrombosis [Unknown]
  - Diabetes mellitus [Unknown]
  - Swelling [Not Recovered/Not Resolved]
  - Abdominal pain [Not Recovered/Not Resolved]
  - Hospitalisation [Unknown]

NARRATIVE: CASE EVENT DATE: 201611
